FAERS Safety Report 4638957-6 (Version None)
Quarter: 2005Q2

REPORT INFORMATION
  Report Type: 
  Country: None (occurrence: None)
  Receive Date: 20050419
  Receipt Date: 20050412
  Transmission Date: 20051028
  Serious: Yes (Hospitalization)
  Sender: FDA-Public Use
  Company Number: JP-GLAXOSMITHKLINE-B0378001A

PATIENT
  Age: 74 Year
  Sex: Female

DRUGS (6)
  1. VALTREX [Suspect]
     Indication: HERPES ZOSTER
     Dosage: 500MG THREE TIMES PER DAY
     Route: 048
     Dates: start: 20041101, end: 20041107
  2. MUCODYNE [Concomitant]
     Route: 048
  3. MUCOSOLVAN [Concomitant]
     Route: 048
  4. BEZATOL SR [Concomitant]
     Route: 048
  5. CALCITONIN [Concomitant]
     Route: 030
  6. FOSAMAC [Concomitant]
     Route: 048

REACTIONS (1)
  - INTERSTITIAL LUNG DISEASE [None]
